FAERS Safety Report 7400116-1 (Version None)
Quarter: 2011Q2

REPORT INFORMATION
  Report Type: 
  Country: None (occurrence: None)
  Receive Date: 20110407
  Receipt Date: 20110328
  Transmission Date: 20111010
  Serious: Yes (Death)
  Sender: FDA-Public Use
  Company Number: US-BAXTER-2011BH008066

PATIENT
  Age: 59 Year
  Sex: Male

DRUGS (1)
  1. DIANEAL [Suspect]
     Indication: PERITONEAL DIALYSIS
     Route: 033
     Dates: start: 20100910

REACTIONS (7)
  - HEPATIC NEOPLASM MALIGNANT [None]
  - ABDOMINAL PAIN [None]
  - RESPIRATORY FAILURE [None]
  - MYOCARDIAL INFARCTION [None]
  - COLON CANCER [None]
  - LUNG NEOPLASM MALIGNANT [None]
  - COLON CANCER METASTATIC [None]
